FAERS Safety Report 15710707 (Version 3)
Quarter: 2019Q1

REPORT INFORMATION
  Report Type: Report from Study
  Country: IT (occurrence: IT)
  Receive Date: 20181211
  Receipt Date: 20190128
  Transmission Date: 20190417
  Serious: Yes (Death, Hospitalization)
  Sender: FDA-Public Use
  Company Number: IT-SA-2018SA334889

PATIENT
  Age: 66 Year
  Sex: Male
  Weight: 78.5 kg

DRUGS (17)
  1. FLUOROURACIL. [Suspect]
     Active Substance: FLUOROURACIL
     Dosage: 780 MG
     Route: 040
     Dates: start: 20180926, end: 20180926
  2. OXALIPLATIN. [Suspect]
     Active Substance: OXALIPLATIN
     Indication: PANCREATIC CARCINOMA METASTATIC
     Dosage: 165 MG
     Route: 042
     Dates: start: 20180803, end: 20180803
  3. FLUOROURACIL. [Suspect]
     Active Substance: FLUOROURACIL
     Dosage: 4700 MG
     Route: 040
     Dates: start: 20180926, end: 20180926
  4. CALCIUM FOLINATE [Suspect]
     Active Substance: LEUCOVORIN CALCIUM
     Dosage: UNK
  5. PEGILODECAKIN [Suspect]
     Active Substance: PEGILODECAKIN
     Dosage: 0.4 MG, QD
     Route: 058
     Dates: start: 20180803, end: 20181005
  6. HUMALOG [Concomitant]
     Active Substance: INSULIN LISPRO
     Dosage: UNK
     Dates: start: 20180305
  7. DEURSIL [Concomitant]
     Active Substance: URSODIOL
     Dosage: UNK
     Dates: start: 20181013
  8. OXALIPLATIN. [Suspect]
     Active Substance: OXALIPLATIN
     Dosage: 165 MG, QCY
     Route: 042
     Dates: start: 20180924, end: 20180924
  9. ACICLOVIR [Concomitant]
     Active Substance: ACYCLOVIR
     Dosage: UNK
     Dates: start: 20181011, end: 20181017
  10. CALCIUM FOLINATE [Suspect]
     Active Substance: LEUCOVORIN CALCIUM
     Indication: PANCREATIC CARCINOMA METASTATIC
     Dosage: 780 MG, QCY
     Route: 042
     Dates: start: 20180803, end: 20180803
  11. CALCIUM FOLINATE [Suspect]
     Active Substance: LEUCOVORIN CALCIUM
     Dosage: 780 MG, QCY
     Route: 042
     Dates: start: 20180924, end: 20180924
  12. LANSOPRAZOLE. [Concomitant]
     Active Substance: LANSOPRAZOLE
     Dosage: UNK
     Dates: start: 20181009
  13. FLUOROURACIL. [Suspect]
     Active Substance: FLUOROURACIL
     Dosage: 780 MG/M2
     Route: 040
     Dates: start: 20180803, end: 20180803
  14. MYCOSTATIN [Concomitant]
     Active Substance: NYSTATIN
     Dosage: UNK
     Dates: start: 20181009
  15. FLUOROURACIL. [Suspect]
     Active Substance: FLUOROURACIL
     Dosage: 4700 MG
     Route: 040
     Dates: start: 20180803, end: 20180803
  16. LANTUS [Concomitant]
     Active Substance: INSULIN GLARGINE
     Dosage: UNK
     Dates: start: 20180305
  17. MEDROL [Concomitant]
     Active Substance: METHYLPREDNISOLONE
     Dosage: UNK
     Dates: start: 20181016, end: 20181024

REACTIONS (9)
  - Jaundice [Unknown]
  - Pyrexia [Unknown]
  - Vomiting [Unknown]
  - Cholangitis [Unknown]
  - Nausea [Unknown]
  - Hypotension [Unknown]
  - Escherichia sepsis [Recovered/Resolved]
  - Chills [Unknown]
  - Neoplasm malignant [Fatal]

NARRATIVE: CASE EVENT DATE: 20181008
